FAERS Safety Report 10027802 (Version 1)
Quarter: 2014Q1

REPORT INFORMATION
  Report Type: Spontaneous
  Country: DK (occurrence: DK)
  Receive Date: 20140321
  Receipt Date: 20140321
  Transmission Date: 20141002
  Serious: Yes (Other)
  Sender: FDA-Public Use
  Company Number: DK-BAYER-2014-038255

PATIENT
  Age: 23 Year
  Sex: Female

DRUGS (3)
  1. NIFEDIPINE [Suspect]
     Indication: PULMONARY ARTERIAL HYPERTENSION
     Dosage: 60 MG, BID
  2. COUMADIN [Concomitant]
     Indication: ANTICOAGULANT THERAPY
  3. HEPARIN [Concomitant]
     Indication: ANTICOAGULANT THERAPY

REACTIONS (4)
  - Exposure during pregnancy [None]
  - Off label use [None]
  - Hypotension [Recovered/Resolved]
  - Atrioventricular block second degree [None]
